FAERS Safety Report 10610259 (Version 1)
Quarter: 2014Q4

REPORT INFORMATION
  Report Type: Spontaneous
  Country: US (occurrence: US)
  Receive Date: 20141126
  Receipt Date: 20141126
  Transmission Date: 20150529
  Serious: Yes (Other)
  Sender: FDA-Public Use
  Company Number: US-EISAI MEDICAL RESEARCH-EC-2014-001892

PATIENT
  Sex: Female
  Weight: 72 kg

DRUGS (7)
  1. ZONEGRAN [Suspect]
     Active Substance: ZONISAMIDE
     Route: 048
     Dates: start: 201408, end: 2014
  2. ZONEGRAN [Suspect]
     Active Substance: ZONISAMIDE
     Dosage: UP TITRATION (DOSE NOT SPECIFIED)
     Route: 048
     Dates: start: 201408, end: 201408
  3. XANAX [Concomitant]
     Active Substance: ALPRAZOLAM
     Indication: SEIZURE
     Route: 048
  4. ZONEGRAN [Suspect]
     Active Substance: ZONISAMIDE
     Route: 048
     Dates: start: 2014, end: 2014
  5. PRIMODONE [Concomitant]
     Indication: TREMOR
     Route: 048
  6. ZONEGRAN [Suspect]
     Active Substance: ZONISAMIDE
     Indication: EPILEPSY
     Dosage: UNKNOWN
     Route: 048
     Dates: start: 201408, end: 201408
  7. ZONEGRAN [Suspect]
     Active Substance: ZONISAMIDE
     Route: 048
     Dates: start: 2014

REACTIONS (4)
  - Influenza like illness [Not Recovered/Not Resolved]
  - Seizure [Unknown]
  - Nausea [Recovering/Resolving]
  - Vomiting [Recovering/Resolving]

NARRATIVE: CASE EVENT DATE: 2014
